FAERS Safety Report 6293069-3 (Version None)
Quarter: 2009Q3

REPORT INFORMATION
  Report Type: 
  Country: None (occurrence: None)
  Receive Date: 20090729
  Receipt Date: 20090720
  Transmission Date: 20100115
  Serious: Yes (Life-Threatening, Other)
  Sender: FDA-Public Use
  Company Number: ADR10102009

PATIENT
  Age: 38 Year
  Sex: Female

DRUGS (5)
  1. AMLODIPINE [Suspect]
     Indication: BLOOD PRESSURE
     Dosage: 10MG; ORAL
     Route: 048
     Dates: start: 20050609, end: 20050811
  2. AMLODIPINE [Suspect]
     Indication: BLOOD PRESSURE
     Dosage: 10MG; ORAL
     Route: 048
     Dates: start: 20050811, end: 20080118
  3. BENDROFLUMETHIAZIDE (BENDROFLUAZIDE) [Concomitant]
  4. CODEINE PHOSPHATE (CODEINE) [Concomitant]
  5. VALSARTAN [Concomitant]

REACTIONS (2)
  - ELECTROCARDIOGRAM QT PROLONGED [None]
  - VENTRICULAR EXTRASYSTOLES [None]
